FAERS Safety Report 10192813 (Version 2)
Quarter: 2014Q4

REPORT INFORMATION
  Report Type: Report from Study
  Country: AT (occurrence: AT)
  Receive Date: 20140523
  Receipt Date: 20141030
  Transmission Date: 20150528
  Serious: Yes (Hospitalization)
  Sender: FDA-Public Use
  Company Number: AT-ASTRAZENECA-2014SE34292

PATIENT
  Age: 19984 Day
  Sex: Female

DRUGS (3)
  1. INHIBACE [Concomitant]
     Active Substance: CILAZAPRIL ANHYDROUS
  2. ARIMIDEX [Suspect]
     Active Substance: ANASTROZOLE
     Indication: BREAST CANCER FEMALE
     Route: 048
     Dates: start: 20100318
  3. SELOKEN RET [Concomitant]

REACTIONS (1)
  - Brain stem stroke [Recovered/Resolved]

NARRATIVE: CASE EVENT DATE: 20140515
